FAERS Safety Report 17642187 (Version 3)
Quarter: 2025Q4

REPORT INFORMATION
  Report Type: Spontaneous
  Country: EU (occurrence: EU)
  Receive Date: 20200408
  Receipt Date: 20251126
  Transmission Date: 20260118
  Serious: Yes (Other)
  Sender: SANOFI AVENTIS
  Company Number: EU-EMA-DD-20200326-KUMARSINGH_A-144800

PATIENT
  Age: 26 Year
  Sex: Female

DRUGS (13)
  1. ENOXAPARIN SODIUM [Suspect]
     Active Substance: ENOXAPARIN SODIUM
     Indication: Chronic kidney disease-mineral and bone disorder
     Dosage: UNK
     Route: 065
  2. SIMVASTATIN [Suspect]
     Active Substance: SIMVASTATIN
     Indication: Chronic kidney disease-mineral and bone disorder
     Dosage: UNK
     Route: 065
  3. CALCIUM CARBONATE [Suspect]
     Active Substance: CALCIUM CARBONATE
     Indication: Chronic kidney disease-mineral and bone disorder
     Dosage: UNK
     Route: 065
  4. OMEPRAZOLE [Suspect]
     Active Substance: OMEPRAZOLE
     Indication: Chronic kidney disease-mineral and bone disorder
     Dosage: UNK
     Route: 065
  5. CINACALCET HYDROCHLORIDE [Suspect]
     Active Substance: CINACALCET HYDROCHLORIDE
     Indication: Chronic kidney disease-mineral and bone disorder
     Dosage: UNK
     Route: 065
  6. PREDNISOLONE [Suspect]
     Active Substance: PREDNISOLONE
     Indication: Chronic kidney disease-mineral and bone disorder
     Dosage: UNK
     Route: 065
  7. FOLIC ACID [Suspect]
     Active Substance: FOLIC ACID
     Indication: Chronic kidney disease-mineral and bone disorder
     Dosage: UNK
     Route: 065
  8. ICODEXTRIN [Suspect]
     Active Substance: ICODEXTRIN
     Indication: Product used for unknown indication
     Dosage: 1.36 GLUCOSE PLUS 2L OF ICODEXTRIN SOLUTION
     Route: 065
  9. DARBEPOETIN ALFA [Suspect]
     Active Substance: DARBEPOETIN ALFA
     Indication: Chronic kidney disease-mineral and bone disorder
     Dosage: UNK
     Route: 016
  10. CALCITRIOL [Suspect]
     Active Substance: CALCITRIOL
     Indication: Chronic kidney disease-mineral and bone disorder
     Dosage: UNK
     Route: 065
  11. CHOLECALCIFEROL [Suspect]
     Active Substance: CHOLECALCIFEROL
     Indication: Chronic kidney disease-mineral and bone disorder
     Dosage: UNK
     Route: 065
  12. VITAMIN B COMPLEX [Suspect]
     Active Substance: CYANOCOBALAMIN\DEXPANTHENOL\NIACINAMIDE\PYRIDOXINE HYDROCHLORIDE\RIBOFLAVIN 5^-PHOSPHATE SODIUM\THIA
     Indication: Chronic kidney disease-mineral and bone disorder
     Dosage: UNK
     Route: 065
  13. MYCOPHENOLIC ACID [Suspect]
     Active Substance: MYCOPHENOLIC ACID
     Indication: Chronic kidney disease-mineral and bone disorder
     Dosage: UNK
     Route: 065

REACTIONS (3)
  - Chronic kidney disease-mineral and bone disorder [Unknown]
  - Off label use [Unknown]
  - Therapeutic response decreased [Unknown]
